FAERS Safety Report 9451229 (Version 1)
Quarter: 2013Q3

REPORT INFORMATION
  Report Type: Spontaneous
  Country: IT (occurrence: IT)
  Receive Date: 20130809
  Receipt Date: 20130809
  Transmission Date: 20140515
  Serious: Yes (Other)
  Sender: FDA-Public Use
  Company Number: IT-TEVA-423047ISR

PATIENT
  Age: 65 Year
  Sex: Male
  Weight: 65 kg

DRUGS (6)
  1. IRINOTECAN [Suspect]
     Indication: RECTAL CANCER
     Dosage: 300 MG CYCLICAL
     Route: 042
     Dates: start: 20130201, end: 20130316
  2. FLUOROURACIL [Suspect]
     Indication: RECTAL CANCER
     Dosage: 4760 MG CYCLICAL
     Route: 042
     Dates: start: 20130201
  3. AVASTIN [Suspect]
     Indication: RECTAL CANCER
     Dosage: 325 MG CYCLICAL
     Route: 042
     Dates: start: 20130216, end: 20130316
  4. LOPRESOR [Concomitant]
     Indication: HYPERTENSION
  5. MICARDIS [Concomitant]
     Indication: HYPERTENSION
  6. ACIDO LEVO FOLINICO [Concomitant]
     Dates: start: 20130112, end: 20130511

REACTIONS (6)
  - Haematochezia [Recovering/Resolving]
  - Diarrhoea [Recovering/Resolving]
  - Blood pressure increased [Recovering/Resolving]
  - Abdominal pain [Recovering/Resolving]
  - Abdominal pain [Recovering/Resolving]
  - Asthenia [Recovering/Resolving]
